FAERS Safety Report 21119610 (Version 2)
Quarter: 2022Q3

REPORT INFORMATION
  Report Type: Spontaneous
  Country: US (occurrence: US)
  Receive Date: 20220722
  Receipt Date: 20220728
  Transmission Date: 20221027
  Serious: Yes (Other)
  Sender: FDA-Public Use
  Company Number: US-JNJFOC-20220726348

PATIENT

DRUGS (2)
  1. STELARA [Suspect]
     Active Substance: USTEKINUMAB
     Indication: Product used for unknown indication
     Route: 058
  2. STELARA [Suspect]
     Active Substance: USTEKINUMAB

REACTIONS (6)
  - Clostridium difficile infection [Unknown]
  - Condition aggravated [Unknown]
  - Escherichia infection [Unknown]
  - Product dose omission issue [Unknown]
  - Syringe issue [Unknown]
  - Device malfunction [Unknown]
